FAERS Safety Report 15584915 (Version 3)
Quarter: 2018Q4

REPORT INFORMATION
  Report Type: Report from Study
  Country: US (occurrence: US)
  Receive Date: 20181102
  Receipt Date: 20181221
  Transmission Date: 20190205
  Serious: Yes (Hospitalization, Other)
  Sender: FDA-Public Use
  Company Number: US-GILEAD-2018-0369323

PATIENT
  Age: 62 Year
  Sex: Male

DRUGS (11)
  1. ASPIRIN (E.C.) [Concomitant]
     Active Substance: ASPIRIN
  2. ADCIRCA [Concomitant]
     Active Substance: TADALAFIL
  3. AMBRISENTAN [Suspect]
     Active Substance: AMBRISENTAN
     Indication: PULMONARY HYPERTENSION
     Dosage: 5 MG, QD
     Route: 065
     Dates: start: 20110111
  4. AMBRISENTAN [Suspect]
     Active Substance: AMBRISENTAN
     Indication: CARDIAC VALVE DISEASE
  5. FOLIC ACID. [Concomitant]
     Active Substance: FOLIC ACID
  6. LISPRO INSULIN [Concomitant]
     Active Substance: INSULIN LISPRO
  7. MIDODRINE [Concomitant]
     Active Substance: MIDODRINE
  8. PROSOURCE TF [Concomitant]
  9. APIXABAN [Concomitant]
     Active Substance: APIXABAN
  10. MULTIVITAMIN + MINERAL [Concomitant]
  11. ROPINIROLE. [Concomitant]
     Active Substance: ROPINIROLE

REACTIONS (4)
  - Tricuspid valve incompetence [Unknown]
  - Feeding tube user [Not Recovered/Not Resolved]
  - Dysphagia [Recovered/Resolved]
  - Mitral valve stenosis [Unknown]
